FAERS Safety Report 26100708 (Version 1)
Quarter: 2025Q4

REPORT INFORMATION
  Report Type: Spontaneous
  Country: CN (occurrence: CN)
  Receive Date: 20251128
  Receipt Date: 20251128
  Transmission Date: 20260117
  Serious: Yes (Other)
  Sender: DR REDDYS
  Company Number: None

PATIENT
  Age: 75 Year
  Sex: Male
  Weight: 50.0 kg

DRUGS (6)
  1. OLANZAPINE [Suspect]
     Active Substance: OLANZAPINE
     Indication: Schizophrenia
     Dosage: 10MG,QD
     Route: 048
     Dates: start: 20251014, end: 20251021
  2. HALOPERIDOL [Suspect]
     Active Substance: HALOPERIDOL
     Indication: Schizophrenia
     Dosage: 2.5MG,QD?THERAPY START DATE: 21-OCT-2025
     Route: 030
     Dates: end: 20251021
  3. IRBESARTAN [Concomitant]
     Active Substance: IRBESARTAN
     Indication: Hypertension
     Dosage: 75MG,QD
     Route: 048
     Dates: start: 20251015, end: 20251102
  4. Right zopiclone [Concomitant]
     Indication: Sleep disorder
     Dosage: 1.5MG,QD
     Route: 048
     Dates: start: 20251018, end: 20251021
  5. AMLODIPINE [Concomitant]
     Active Substance: AMLODIPINE BESYLATE
     Indication: Hypertension
     Dosage: 5MG,QD
     Route: 048
     Dates: start: 20251014, end: 20251102
  6. ATORVASTATIN CALCIUM [Concomitant]
     Active Substance: ATORVASTATIN CALCIUM
     Indication: Arteriosclerosis
     Dosage: 10MG,QD
     Route: 048
     Dates: start: 20251015, end: 20251102

REACTIONS (2)
  - Rectal tenesmus [Recovering/Resolving]
  - Urinary retention [Recovering/Resolving]

NARRATIVE: CASE EVENT DATE: 20251020
